FAERS Safety Report 21188875 (Version 1)
Quarter: 2022Q3

REPORT INFORMATION
  Report Type: Other
  Country: US (occurrence: None)
  Receive Date: 20220809
  Receipt Date: 20220809
  Transmission Date: 20221026
  Serious: No
  Sender: FDA-Public Use
  Company Number: US-ROCHE-3151643

PATIENT
  Sex: Female

DRUGS (1)
  1. OCREVUS [Suspect]
     Active Substance: OCRELIZUMAB
     Indication: Multiple sclerosis
     Dosage: YES
     Route: 065
     Dates: start: 20211230

REACTIONS (6)
  - COVID-19 [Unknown]
  - Immunodeficiency [Unknown]
  - Gait disturbance [Unknown]
  - Gait disturbance [Unknown]
  - Fall [Unknown]
  - Memory impairment [Unknown]
